FAERS Safety Report 17815524 (Version 1)
Quarter: 2020Q2

REPORT INFORMATION
  Report Type: Spontaneous
  Country: US (occurrence: US)
  Receive Date: 20200521
  Receipt Date: 20200521
  Transmission Date: 20200714
  Serious: Yes (Disabling)
  Sender: FDA-Public Use
  Company Number: None

PATIENT
  Age: 79 Year
  Sex: Male
  Weight: 81 kg

DRUGS (1)
  1. AMIODARONE [Suspect]
     Active Substance: AMIODARONE
     Indication: ATRIAL FIBRILLATION
     Dates: start: 20200114, end: 20200510

REACTIONS (5)
  - Dyskinesia [None]
  - Mobility decreased [None]
  - Walking aid user [None]
  - Muscle twitching [None]
  - Hepatic enzyme increased [None]

NARRATIVE: CASE EVENT DATE: 20200115
